FAERS Safety Report 10161748 (Version 1)
Quarter: 2014Q2

REPORT INFORMATION
  Report Type: Spontaneous
  Country: TR (occurrence: TR)
  Receive Date: 20140509
  Receipt Date: 20140509
  Transmission Date: 20141212
  Serious: Yes (Hospitalization)
  Sender: FDA-Public Use
  Company Number: TR-ACCORD-023531

PATIENT
  Age: 43 Year
  Sex: Female

DRUGS (6)
  1. VINCRISTINE [Concomitant]
     Indication: BURKITT^S LYMPHOMA
  2. RITUXIMAB [Concomitant]
     Indication: BURKITT^S LYMPHOMA
  3. CYCLOPHOSPHAMIDE/CYCLOPHOSPHAMIDE MONOHYDRATE [Concomitant]
     Indication: BURKITT^S LYMPHOMA
  4. DOXORUBICIN [Concomitant]
     Indication: BURKITT^S LYMPHOMA
  5. DEXAMETHASONE [Concomitant]
     Indication: BURKITT^S LYMPHOMA
  6. METHOTREXATE [Suspect]
     Indication: BURKITT^S LYMPHOMA
     Route: 037

REACTIONS (1)
  - Posterior reversible encephalopathy syndrome [Recovered/Resolved]
